FAERS Safety Report 8262146-X (Version None)
Quarter: 2012Q2

REPORT INFORMATION
  Report Type: 
  Country: None (occurrence: None)
  Receive Date: 20120405
  Receipt Date: 20120403
  Transmission Date: 20120825
  Serious: Yes (Death)
  Sender: FDA-Public Use
  Company Number: PHHY2012JP025085

PATIENT
  Age: 83 Year
  Sex: Male

DRUGS (10)
  1. AMARYL [Concomitant]
     Dosage: 1 MG, UNK
     Route: 048
  2. BUFFERIN [Concomitant]
     Dosage: 1 DF, UNK
     Route: 048
  3. SERMION [Concomitant]
     Dosage: 3 DF, UNK
     Route: 048
  4. EXELON [Suspect]
     Indication: DEMENTIA ALZHEIMER'S TYPE
     Dosage: 4.5 MG, DAILY
     Route: 062
     Dates: start: 20110805
  5. EXELON [Suspect]
     Dosage: 18 MG, DAILY
     Route: 062
     Dates: start: 20111107
  6. ISOSORBIDE DINITRATE [Concomitant]
     Dosage: 2 DF, UNK
     Route: 048
  7. EXELON [Suspect]
     Dosage: 9 MG, DAILY
     Route: 062
     Dates: start: 20110905
  8. DIGOXIN [Concomitant]
     Dosage: 1 DF, UNK
     Route: 048
  9. EXELON [Suspect]
     Dosage: 13.5 MG, DAILY
     Route: 062
     Dates: start: 20111003
  10. NIVADIL [Concomitant]
     Dosage: 2 DF, UNK
     Route: 048

REACTIONS (2)
  - CEREBRAL HAEMORRHAGE [None]
  - MARASMUS [None]
